FAERS Safety Report 8616491-6 (Version None)
Quarter: 2012Q3

REPORT INFORMATION
  Report Type: 
  Country: None (occurrence: None)
  Receive Date: 20120823
  Receipt Date: 20120811
  Transmission Date: 20120928
  Serious: Yes (Hospitalization, Other)
  Sender: FDA-Public Use
  Company Number: SV-ELI_LILLY_AND_COMPANY-SV201205007046

PATIENT
  Age: 67 Year
  Sex: Female

DRUGS (3)
  1. LANTUS [Concomitant]
     Indication: TYPE 2 DIABETES MELLITUS
     Dosage: UNK
     Dates: start: 20111101
  2. HUMALOG [Suspect]
     Indication: TYPE 2 DIABETES MELLITUS
     Dosage: UNK
     Dates: start: 20111101
  3. HUMALOG MIX 75/25 [Suspect]
     Dosage: UNK

REACTIONS (5)
  - HYPOGLYCAEMIA [None]
  - SKIN ULCER [None]
  - INTENTIONAL DRUG MISUSE [None]
  - INFECTED SKIN ULCER [None]
  - WRONG DRUG ADMINISTERED [None]
